FAERS Safety Report 4802780-X (Version None)
Quarter: 2005Q4

REPORT INFORMATION
  Report Type: 
  Country: None (occurrence: None)
  Receive Date: 20051017
  Receipt Date: 20051017
  Transmission Date: 20060501
  Serious: Yes (Disabling)
  Sender: FDA-Public Use
  Company Number: None

PATIENT
  Age: 48 Year
  Sex: Female
  Weight: 92.9874 kg

DRUGS (2)
  1. PAXIL [Suspect]
     Indication: ANXIETY
     Dosage: 1 DAILY PO
     Route: 048
     Dates: start: 19980301, end: 20050901
  2. PAXIL [Suspect]
     Indication: PANIC ATTACK
     Dosage: 1 DAILY PO
     Route: 048
     Dates: start: 19980301, end: 20050901

REACTIONS (5)
  - ANGER [None]
  - CRYING [None]
  - DRUG WITHDRAWAL SYNDROME [None]
  - MOTION SICKNESS [None]
  - MYALGIA [None]
